FAERS Safety Report 25779511 (Version 2)
Quarter: 2025Q4

REPORT INFORMATION
  Report Type: Spontaneous
  Country: US (occurrence: US)
  Receive Date: 20250909
  Receipt Date: 20251107
  Transmission Date: 20260117
  Serious: Yes (Hospitalization, Disabling, Other)
  Sender: CIPLA
  Company Number: US-CIPLA LTD.-2025US11115

PATIENT

DRUGS (16)
  1. TERBINAFINE [Suspect]
     Active Substance: TERBINAFINE
     Indication: Onychomycosis
     Dosage: 250 MILLIGRAM, QD (FOR 7 DAYS), REPEAT IN 3 WEEKS
     Route: 048
     Dates: start: 20250410, end: 20250414
  2. AMLODIPINE [Concomitant]
     Active Substance: AMLODIPINE BESYLATE
     Indication: Hypertension
     Dosage: 10 MILLIGRAM, QD
     Route: 065
     Dates: start: 2005
  3. AMLODIPINE [Concomitant]
     Active Substance: AMLODIPINE BESYLATE
     Dosage: UNK, INCREASED DURING HOSPITAL STAY
     Route: 065
  4. AMLODIPINE [Concomitant]
     Active Substance: AMLODIPINE BESYLATE
     Dosage: UNK, REDUCED BACK TO DOSAGES NOTED ABOVE THE DAY)
     Route: 065
  5. ATORVASTATIN [Concomitant]
     Active Substance: ATORVASTATIN
     Indication: Blood cholesterol increased
     Dosage: 10 MILLIGRAM, QD
     Route: 065
     Dates: start: 2023
  6. CHOLECALCIFEROL [Concomitant]
     Active Substance: CHOLECALCIFEROL
     Indication: Vitamin D abnormal
     Dosage: 50 MICROGRAM, QD
     Route: 065
     Dates: start: 2018
  7. CYANOCOBALAMIN [Concomitant]
     Active Substance: CYANOCOBALAMIN
     Indication: Vitamin B12 deficiency
     Dosage: 2000 MICROGRAM, QD
     Route: 065
     Dates: start: 2024
  8. PERAMPANEL [Concomitant]
     Active Substance: PERAMPANEL
     Indication: Seizure
     Dosage: 12 MILLIGRAM, QD
     Route: 065
     Dates: start: 2020
  9. TEGRETOL [Concomitant]
     Active Substance: CARBAMAZEPINE
     Indication: Seizure
     Dosage: 400 MILLIGRAM, BID (400 MG 2X/DAY)
     Route: 065
     Dates: start: 1993
  10. TEGRETOL [Concomitant]
     Active Substance: CARBAMAZEPINE
     Dosage: 200 MILLIGRAM, BID ((R 200 MG 2X/DAY))
     Route: 065
  11. VALSARTAN [Concomitant]
     Active Substance: VALSARTAN
     Indication: Hypertension
     Dosage: 80 MILLIGRAM, QD
     Route: 065
     Dates: start: 2016
  12. VALSARTAN [Concomitant]
     Active Substance: VALSARTAN
     Dosage: UNK, REDUCED BACK TO DOSAGES NOTED ABOVE THE DAY)
     Route: 065
  13. VALSARTAN [Concomitant]
     Active Substance: VALSARTAN
     Dosage: UNK, INCREASED DURING HOSPITAL STAY
     Route: 065
  14. CLOBAZAM [Concomitant]
     Active Substance: CLOBAZAM
     Indication: Seizure
     Dosage: UNK
     Route: 065
     Dates: start: 2022
  15. ASPIRIN [Concomitant]
     Active Substance: ASPIRIN
     Indication: Thrombosis
     Dosage: 81 MILLIGRAM (LOW DOSE ASPIRIN)
     Route: 065
     Dates: start: 2023, end: 20250415
  16. FERROUS SULFATE [Concomitant]
     Active Substance: FERROUS SULFATE
     Indication: Iron deficiency anaemia
     Dosage: 45 MILLIGRAM
     Route: 065

REACTIONS (1)
  - Haemorrhagic stroke [Recovering/Resolving]

NARRATIVE: CASE EVENT DATE: 20250414
